FAERS Safety Report 15324554 (Version 2)
Quarter: 2018Q3

REPORT INFORMATION
  Report Type: Spontaneous
  Country: IN (occurrence: IN)
  Receive Date: 20180828
  Receipt Date: 20180829
  Transmission Date: 20181010
  Serious: No
  Sender: FDA-Public Use
  Company Number: IN-ABBVIE-18P-078-2465859-00

PATIENT
  Age: 50 Year
  Sex: Female

DRUGS (2)
  1. THYRONORM [Suspect]
     Active Substance: LEVOTHYROXINE
     Indication: HYPOTHYROIDISM
     Dosage: THYRONORM 100 MCG ONCE A DAY
     Route: 048
     Dates: start: 201802
  2. THYRONORM [Suspect]
     Active Substance: LEVOTHYROXINE
     Dosage: THYRONORM 75 MCG (FOR 6 MONTHS)
     Route: 048

REACTIONS (4)
  - Blood cholesterol abnormal [Unknown]
  - Thyroid function test abnormal [Unknown]
  - Blood glucose increased [Unknown]
  - Blood pressure abnormal [Unknown]
